FAERS Safety Report 18315121 (Version 1)
Quarter: 2020Q3

REPORT INFORMATION
  Report Type: Spontaneous
  Country: US (occurrence: US)
  Receive Date: 20200925
  Receipt Date: 20200925
  Transmission Date: 20201103
  Serious: No
  Sender: FDA-Public Use
  Company Number: US-VERASTEM-2020-00092

PATIENT

DRUGS (2)
  1. COPIKTRA [Suspect]
     Active Substance: DUVELISIB
     Dosage: 15 MG, QD
     Route: 048
  2. COPIKTRA [Suspect]
     Active Substance: DUVELISIB
     Indication: B-CELL LYMPHOMA
     Dosage: 15 MG, BID
     Route: 048

REACTIONS (2)
  - Prescribed underdose [Not Recovered/Not Resolved]
  - Abdominal pain [Unknown]
